FAERS Safety Report 7418468-5 (Version None)
Quarter: 2011Q2

REPORT INFORMATION
  Report Type: 
  Country: None (occurrence: None)
  Receive Date: 20110415
  Receipt Date: 20110412
  Transmission Date: 20111010
  Serious: Yes (Other)
  Sender: FDA-Public Use
  Company Number: US-MERCK-1103USA01285

PATIENT
  Age: 51 Year
  Sex: Female
  Weight: 103 kg

DRUGS (16)
  1. SYMBICORT [Concomitant]
     Route: 065
  2. AMLODIPINE [Concomitant]
     Route: 048
  3. SEROQUEL [Concomitant]
     Route: 048
  4. AMITRIPTYLINE HYDROCHLORIDE [Concomitant]
     Route: 048
  5. SYNTHROID [Concomitant]
     Route: 065
  6. NEXIUM [Concomitant]
     Route: 048
  7. IVEMEND [Suspect]
     Indication: PROPHYLAXIS OF NAUSEA AND VOMITING
     Route: 041
     Dates: start: 20110303, end: 20110303
  8. ALOXI [Concomitant]
     Indication: PROPHYLAXIS OF NAUSEA AND VOMITING
     Route: 042
     Dates: start: 20110303, end: 20110303
  9. DEXAMETHASONE SODIUM PHOSPHATE [Concomitant]
     Indication: PROPHYLAXIS OF NAUSEA AND VOMITING
     Route: 042
     Dates: start: 20110303, end: 20110303
  10. CLONAZEPAM [Concomitant]
     Route: 048
  11. AMBIEN [Concomitant]
     Route: 065
  12. INDERAL [Concomitant]
     Route: 048
  13. SINGULAIR [Concomitant]
     Route: 048
  14. LIPITOR [Concomitant]
     Route: 048
  15. ALBUTEROL [Concomitant]
     Route: 055
  16. DIOVAN [Concomitant]
     Route: 048

REACTIONS (5)
  - DYSPNOEA [None]
  - THROAT TIGHTNESS [None]
  - FLUSHING [None]
  - CHEST PAIN [None]
  - ANXIETY [None]
